FAERS Safety Report 14465813 (Version 1)
Quarter: 2018Q1

REPORT INFORMATION
  Report Type: Other
  Country: IT (occurrence: IT)
  Receive Date: 20180131
  Receipt Date: 20180131
  Transmission Date: 20180509
  Serious: Yes (Other)
  Sender: FDA-Public Use
  Company Number: IT-APOTEX-2018AP005978

PATIENT
  Age: 3 Year
  Sex: Male

DRUGS (1)
  1. CLARITHROMYCIN. [Suspect]
     Active Substance: CLARITHROMYCIN
     Indication: PNEUMONIA
     Dosage: UNK
     Route: 048
     Dates: start: 20171220

REACTIONS (3)
  - Rash pruritic [Unknown]
  - Rash macular [Unknown]
  - Off label use [Unknown]

NARRATIVE: CASE EVENT DATE: 20171225
